FAERS Safety Report 24042686 (Version 1)
Quarter: 2024Q3

REPORT INFORMATION
  Report Type: Spontaneous
  Country: US (occurrence: US)
  Receive Date: 20240702
  Receipt Date: 20240702
  Transmission Date: 20241016
  Serious: No
  Sender: INTRA-CELLULAR THERAPIES
  Company Number: US-INTRA-CELLULAR THERAPIES, INC.-2024ICT00714

PATIENT
  Age: 20 Year
  Sex: Male
  Weight: 76.644 kg

DRUGS (1)
  1. CAPLYTA [Suspect]
     Active Substance: LUMATEPERONE
     Indication: Bipolar disorder
     Dosage: 42 MG, 1X/DAY
     Route: 048
     Dates: start: 20240402, end: 20240422

REACTIONS (4)
  - Depression [Unknown]
  - Anxiety [Unknown]
  - Hypoaesthesia [Unknown]
  - Fatigue [Unknown]

NARRATIVE: CASE EVENT DATE: 20240401
